FAERS Safety Report 5858306-5 (Version None)
Quarter: 2008Q3

REPORT INFORMATION
  Report Type: 
  Country: None (occurrence: None)
  Receive Date: 20080826
  Receipt Date: 20080815
  Transmission Date: 20090109
  Serious: Yes (Death)
  Sender: FDA-Public Use
  Company Number: B0531306B

PATIENT
  Age: 65 Year
  Sex: Female

DRUGS (9)
  1. LAPATINIB [Suspect]
     Dosage: 1250MG PER DAY
     Route: 048
     Dates: start: 20071210
  2. CAPECITABINE [Suspect]
     Dosage: 1450MG TWICE PER DAY
     Route: 048
     Dates: start: 20071210
  3. NYSTATIN [Concomitant]
     Dosage: 1ML FOUR TIMES PER DAY
     Route: 048
     Dates: start: 20080730, end: 20080801
  4. CEFUROXIME SODIUM [Concomitant]
     Dosage: 1.5G THREE TIMES PER DAY
     Route: 042
     Dates: start: 20080730, end: 20080801
  5. METRONIDAZOLE [Concomitant]
     Dosage: 500MG THREE TIMES PER DAY
     Route: 042
     Dates: start: 20080730, end: 20080801
  6. LACTULOSE [Concomitant]
     Dosage: 20ML FOUR TIMES PER DAY
     Route: 048
     Dates: start: 20080730, end: 20080801
  7. ORAMORPH SR [Concomitant]
     Route: 048
     Dates: start: 20080731, end: 20080731
  8. MORPHINE SULFATE [Concomitant]
     Route: 058
     Dates: start: 20080801, end: 20080802
  9. MIDAZOLAM HCL [Concomitant]
     Route: 058
     Dates: start: 20080801, end: 20080802

REACTIONS (2)
  - DEHYDRATION [None]
  - JAUNDICE CHOLESTATIC [None]
